FAERS Safety Report 9614587 (Version 7)
Quarter: 2014Q2

REPORT INFORMATION
  Report Type: Report from Study
  Country: MX (occurrence: MX)
  Receive Date: 20131011
  Receipt Date: 20140401
  Transmission Date: 20141212
  Serious: Yes (Other)
  Sender: FDA-Public Use
  Company Number: PHHY2010MX56725

PATIENT
  Age: 62 Year
  Sex: Female
  Weight: 72 kg

DRUGS (13)
  1. EXFORGE [Suspect]
     Indication: HYPERTENSION
     Dosage: 0.5 DF (160/10 MG), DAILY
     Route: 048
  2. EXFORGE [Suspect]
     Dosage: 1 DF (160MG VALS/10MG AMLO), DAILY
     Route: 048
     Dates: start: 201307, end: 201403
  3. FUROSEMIDE [Concomitant]
     Indication: LOCAL SWELLING
     Dosage: UNK UKN, UNK
     Dates: start: 201307
  4. FUROSEMIDE [Concomitant]
     Indication: DIURETIC THERAPY
  5. PRAVASTATINE [Concomitant]
     Dosage: UNK UKN, UNK
  6. EMEPROTON [Concomitant]
     Dosage: UNK UKN, UNK
  7. COPLAVIX [Concomitant]
     Dosage: 0.5 DF, UNK
     Dates: start: 201310
  8. FIXODIN [Concomitant]
     Indication: HORMONE LEVEL ABNORMAL
     Dosage: 1 UKN, UNK
     Dates: start: 201212
  9. METFORMINE [Concomitant]
     Indication: DIABETES MELLITUS
     Dosage: 0.5 UKN, UNK
     Dates: start: 2008
  10. RESTERAL MG [Concomitant]
     Indication: RELAXATION THERAPY
     Dosage: 1 DF (50MG), DAILY
     Dates: start: 201310
  11. RESTERAL MG [Concomitant]
     Indication: MENTAL DISORDER
  12. TAFIL [Concomitant]
     Indication: RELAXATION THERAPY
     Dosage: 1 DF, DAILY
     Dates: start: 201309
  13. TAFIL [Concomitant]
     Indication: SEDATIVE THERAPY

REACTIONS (52)
  - Cardiomegaly [Not Recovered/Not Resolved]
  - Haemorrhage [Not Recovered/Not Resolved]
  - Colitis [Not Recovered/Not Resolved]
  - Diarrhoea [Not Recovered/Not Resolved]
  - Abdominal pain upper [Not Recovered/Not Resolved]
  - Gastrointestinal pain [Unknown]
  - Limb deformity [Not Recovered/Not Resolved]
  - Vein disorder [Not Recovered/Not Resolved]
  - Nervous system disorder [Not Recovered/Not Resolved]
  - Memory impairment [Not Recovered/Not Resolved]
  - Inflammation [Not Recovered/Not Resolved]
  - Bronchitis [Not Recovered/Not Resolved]
  - Feeling hot [Not Recovered/Not Resolved]
  - Neck pain [Not Recovered/Not Resolved]
  - Rhinorrhoea [Not Recovered/Not Resolved]
  - Hypochondriasis [Not Recovered/Not Resolved]
  - Depression [Not Recovered/Not Resolved]
  - Feeling abnormal [Unknown]
  - Crying [Not Recovered/Not Resolved]
  - Tearfulness [Unknown]
  - Contusion [Not Recovered/Not Resolved]
  - Blood cholesterol increased [Not Recovered/Not Resolved]
  - Blood triglycerides increased [Not Recovered/Not Resolved]
  - Urine abnormality [Not Recovered/Not Resolved]
  - Vascular rupture [Recovering/Resolving]
  - Angiopathy [Recovering/Resolving]
  - Blood pressure fluctuation [Unknown]
  - Blood pressure inadequately controlled [Not Recovered/Not Resolved]
  - Pain in extremity [Not Recovered/Not Resolved]
  - Limb discomfort [Not Recovered/Not Resolved]
  - Back pain [Not Recovered/Not Resolved]
  - Fatigue [Not Recovered/Not Resolved]
  - Hypotension [Not Recovered/Not Resolved]
  - Headache [Not Recovered/Not Resolved]
  - Muscle spasms [Recovering/Resolving]
  - Hyperhidrosis [Not Recovered/Not Resolved]
  - Pharyngeal oedema [Not Recovered/Not Resolved]
  - Cough [Not Recovered/Not Resolved]
  - Anxiety [Not Recovered/Not Resolved]
  - Tension [Not Recovered/Not Resolved]
  - Nervousness [Unknown]
  - Stress [Not Recovered/Not Resolved]
  - Nasopharyngitis [Unknown]
  - Oropharyngeal discomfort [Recovered/Resolved]
  - Productive cough [Not Recovered/Not Resolved]
  - Throat irritation [Not Recovered/Not Resolved]
  - Influenza [Not Recovered/Not Resolved]
  - Oedema peripheral [Recovering/Resolving]
  - Asthenia [Recovering/Resolving]
  - Weight increased [Not Recovered/Not Resolved]
  - Alopecia [Not Recovered/Not Resolved]
  - Wrong technique in drug usage process [Recovered/Resolved]
